FAERS Safety Report 5035446-4 (Version None)
Quarter: 2006Q2

REPORT INFORMATION
  Report Type: 
  Country: None (occurrence: None)
  Receive Date: 20060627
  Receipt Date: 20060207
  Transmission Date: 20061013
  Serious: Yes (Other)
  Sender: FDA-Public Use
  Company Number: US-GLAXOSMITHKLINE-A0592648A

PATIENT
  Age: 26 Year
  Sex: Male

DRUGS (1)
  1. BC ALLERGY SINUS HEADACHE POWDER [Suspect]
     Indication: SINUS DISORDER
     Dosage: 1Z PER DAY
     Route: 048

REACTIONS (3)
  - DEPENDENCE [None]
  - PAIN [None]
  - PROSTATIC HAEMORRHAGE [None]
